FAERS Safety Report 12885330 (Version 1)
Quarter: 2016Q4

REPORT INFORMATION
  Report Type: Spontaneous
  Country: US (occurrence: US)
  Receive Date: 20161025
  Receipt Date: 20161025
  Transmission Date: 20170207
  Serious: Yes (Other)
  Sender: FDA-Public Use
  Company Number: None

PATIENT
  Age: 79 Year
  Sex: Male
  Weight: 91.49 kg

DRUGS (14)
  1. FUROSEMIDE. [Concomitant]
     Active Substance: FUROSEMIDE
  2. ACETAMINOPHEN. [Concomitant]
     Active Substance: ACETAMINOPHEN
  3. ALBUTEROL. [Concomitant]
     Active Substance: ALBUTEROL
  4. TAMSULOSIN [Concomitant]
     Active Substance: TAMSULOSIN
  5. OMEPRAZOLE. [Suspect]
     Active Substance: OMEPRAZOLE
     Indication: GASTROOESOPHAGEAL REFLUX DISEASE
     Dosage: 20 MG/M 2 MILLIGRAMS SQ TWICE A DAY ORAL
     Route: 048
  6. SPIRONOLACTONE. [Concomitant]
     Active Substance: SPIRONOLACTONE
  7. ROSUVASTATIN. [Concomitant]
     Active Substance: ROSUVASTATIN
  8. TIZANIDINE. [Concomitant]
     Active Substance: TIZANIDINE
  9. METOPROLOL. [Concomitant]
     Active Substance: METOPROLOL
  10. TIOTROPIUM [Concomitant]
     Active Substance: TIOTROPIUM
  11. WARFARIN [Concomitant]
     Active Substance: WARFARIN
  12. HYDROCODONE [Concomitant]
     Active Substance: HYDROCODONE
  13. PREGABALIN. [Concomitant]
     Active Substance: PREGABALIN
  14. ASPIRIN. [Concomitant]
     Active Substance: ASPIRIN

REACTIONS (2)
  - Myalgia [None]
  - Myopathy [None]

NARRATIVE: CASE EVENT DATE: 20161018
